FAERS Safety Report 14795155 (Version 3)
Quarter: 2019Q3

REPORT INFORMATION
  Report Type: Report from Study
  Country: US (occurrence: US)
  Receive Date: 20180423
  Receipt Date: 20190806
  Transmission Date: 20191004
  Serious: Yes (Hospitalization)
  Sender: FDA-Public Use
  Company Number: US-GILEAD-2018-0325716

PATIENT
  Age: 32 Year
  Sex: Male
  Weight: 109.5 kg

DRUGS (8)
  1. AZITHROMYCIN ANHYDROUS. [Concomitant]
     Active Substance: AZITHROMYCIN ANHYDROUS
     Indication: PROCTITIS GONOCOCCAL
  2. BICILLIN [BENZATHINE BENZYLPENICILLIN] [Concomitant]
     Indication: SYPHILIS
     Route: 030
     Dates: start: 20180226, end: 20180226
  3. ROCEPHIN [Concomitant]
     Active Substance: CEFTRIAXONE SODIUM
     Indication: PROCTITIS GONOCOCCAL
  4. AZITHROMYCIN ANHYDROUS. [Concomitant]
     Active Substance: AZITHROMYCIN ANHYDROUS
     Indication: OROPHARYNGEAL GONOCOCCAL INFECTION
     Route: 048
     Dates: start: 20180226, end: 20180226
  5. EMTRICITABINE/TENOFOVIR ALAFENAMIDE [Suspect]
     Active Substance: EMTRICITABINE\TENOFOVIR
     Indication: PROPHYLAXIS AGAINST HIV INFECTION
     Dosage: 1 DF, QD
     Route: 048
     Dates: start: 20170602, end: 20190626
  6. ROCEPHIN [Concomitant]
     Active Substance: CEFTRIAXONE SODIUM
     Indication: OROPHARYNGEAL GONOCOCCAL INFECTION
     Dosage: UNK
     Dates: start: 20180226, end: 20180226
  7. MUCINEX SINUS MAX DAY/NIGHT [Concomitant]
     Indication: CHRONIC SINUSITIS
     Route: 048
     Dates: start: 20170611
  8. PLACEBO [Suspect]
     Active Substance: UNSPECIFIED INGREDIENT
     Indication: PROPHYLAXIS AGAINST HIV INFECTION
     Dosage: 1 DF, QD
     Route: 048
     Dates: start: 20170602, end: 20190626

REACTIONS (1)
  - Nephrotic syndrome [Recovered/Resolved]

NARRATIVE: CASE EVENT DATE: 20180307
